FAERS Safety Report 12517692 (Version 1)
Quarter: 2016Q2

REPORT INFORMATION
  Report Type: Report from Study
  Country: US (occurrence: US)
  Receive Date: 20160630
  Receipt Date: 20160630
  Transmission Date: 20160815
  Serious: Yes (Other)
  Sender: FDA-Public Use
  Company Number: US-JNJFOC-20160622542

PATIENT
  Age: 8 Year
  Sex: Male
  Weight: 24.04 kg

DRUGS (6)
  1. REMICADE [Suspect]
     Active Substance: INFLIXIMAB
     Indication: CROHN^S DISEASE
     Route: 042
     Dates: start: 20160520, end: 20160603
  2. LANSOPRAZOLE. [Concomitant]
     Active Substance: LANSOPRAZOLE
     Indication: GASTROOESOPHAGEAL REFLUX DISEASE
     Route: 065
     Dates: start: 2009
  3. POTASSIUM CHLORIDE. [Concomitant]
     Active Substance: POTASSIUM CHLORIDE
     Indication: ABNORMAL FAECES
     Route: 065
     Dates: start: 2009
  4. CHOLESTYRAMINE. [Concomitant]
     Active Substance: CHOLESTYRAMINE
     Indication: PROPHYLAXIS AGAINST GASTROINTESTINAL ULCER
     Dosage: 4 MG 9 MG
     Route: 065
     Dates: start: 2009
  5. SODIUM CITRATE. [Concomitant]
     Active Substance: SODIUM CITRATE
     Indication: HYPONATRAEMIA
     Route: 065
     Dates: start: 2009
  6. POLY-VI-SOL WITH IRON [Concomitant]
     Route: 065
     Dates: start: 2009

REACTIONS (3)
  - Cough [Recovered/Resolved]
  - Generalised erythema [Recovered/Resolved]
  - Infusion related reaction [Recovered/Resolved]

NARRATIVE: CASE EVENT DATE: 20160603
